FAERS Safety Report 18126211 (Version 4)
Quarter: 2020Q4

REPORT INFORMATION
  Report Type: Report from Study
  Country: None (occurrence: FI)
  Receive Date: 20200808
  Receipt Date: 20201015
  Transmission Date: 20210113
  Serious: Yes (Hospitalization)
  Sender: FDA-Public Use
  Company Number: FI-ABBVIE-20K-055-3516797-00

PATIENT
  Age: 76 Year
  Sex: Female
  Weight: 58 kg

DRUGS (8)
  1. DUODOPA [Suspect]
     Active Substance: CARBIDOPA\LEVODOPA
     Dosage: DOSE DECREASED
     Route: 050
     Dates: start: 20200906
  2. COMTESS [Concomitant]
     Active Substance: ENTACAPONE
     Indication: PRODUCT USED FOR UNKNOWN INDICATION
     Dosage: FOR THE NIGHT
     Dates: start: 2011
  3. KARDOPAL [Concomitant]
     Indication: PRODUCT USED FOR UNKNOWN INDICATION
     Dosage: EITHER KARDOPAL OR SINEMET USED, DURING NIGHTS
     Dates: start: 2011
  4. SINEMET [Suspect]
     Active Substance: CARBIDOPA\LEVODOPA
     Indication: PRODUCT USED FOR UNKNOWN INDICATION
     Dosage: EITHER KARDOPAL OR SINEMET USED DURING NIGHTS
     Route: 065
     Dates: start: 2011
  5. KLEXANE [Concomitant]
     Active Substance: ENOXAPARIN
     Indication: PRODUCT USED FOR UNKNOWN INDICATION
     Dates: start: 202008, end: 202008
  6. DUODOPA [Suspect]
     Active Substance: CARBIDOPA\LEVODOPA
     Indication: PARKINSON^S DISEASE
     Dosage: BEFORE THE PATIENT FELL: CD 5.5 ML; MD 5 ML; ED 1.5 ML, 16 H
     Route: 050
     Dates: start: 201602, end: 202008
  7. DUODOPA [Suspect]
     Active Substance: CARBIDOPA\LEVODOPA
     Dosage: AFTER HOSPITAL STAY: CD 4 ML; MD 5 ML; ED 1.5 (ML); 16 H TREATMENT
     Route: 050
     Dates: start: 202008, end: 20200906
  8. MADOPAR QUICK [Concomitant]
     Indication: PRODUCT USED FOR UNKNOWN INDICATION
     Dosage: WHEN NECESSARY
     Dates: start: 2011

REACTIONS (15)
  - Weight decreased [Recovering/Resolving]
  - Complication associated with device [Unknown]
  - Device issue [Unknown]
  - Hypovolaemia [Recovered/Resolved]
  - Device leakage [Recovered/Resolved]
  - Incorrect route of product administration [Recovering/Resolving]
  - Decreased appetite [Recovered/Resolved]
  - Femur fracture [Recovering/Resolving]
  - Medication error [Unknown]
  - Hallucination [Recovering/Resolving]
  - Stoma site erythema [Recovered/Resolved]
  - Fall [Recovering/Resolving]
  - Stoma site reaction [Recovered/Resolved]
  - Dyskinesia [Recovered/Resolved]
  - Hyperhidrosis [Not Recovered/Not Resolved]

NARRATIVE: CASE EVENT DATE: 2020
